FAERS Safety Report 8998211 (Version 1)
Quarter: 2013Q1

REPORT INFORMATION
  Report Type: Spontaneous
  Country: AU (occurrence: AU)
  Receive Date: 20130104
  Receipt Date: 20130104
  Transmission Date: 20140127
  Serious: Yes (Other)
  Sender: FDA-Public Use
  Company Number: AU-ASTELLAS-2012US012676

PATIENT
  Age: 65 Year
  Sex: Female

DRUGS (3)
  1. TARCEVA [Suspect]
     Indication: PRODUCT USED FOR UNKNOWN INDICATION
     Dosage: 150 MG/DAY, UID/QD
     Route: 048
  2. TARCEVA [Suspect]
     Dosage: 100 MG/DAY, UID/QD
     Route: 048
  3. CARBAMAZEPINE [Concomitant]
     Indication: PRODUCT USED FOR UNKNOWN INDICATION
     Dosage: UNK
     Route: 065

REACTIONS (6)
  - Eastern Cooperative Oncology Group performance status [Unknown]
  - Metastases to liver [Unknown]
  - Rash maculo-papular [Recovering/Resolving]
  - Musculoskeletal chest pain [Recovering/Resolving]
  - Lethargy [Unknown]
  - Diarrhoea [Unknown]
